FAERS Safety Report 17811437 (Version 1)
Quarter: 2020Q2

REPORT INFORMATION
  Report Type: Spontaneous
  Country: US (occurrence: US)
  Receive Date: 20200520
  Receipt Date: 20200520
  Transmission Date: 20200714
  Serious: Yes (Hospitalization)
  Sender: FDA-Public Use
  Company Number: None

PATIENT
  Age: 66 Year
  Sex: Male

DRUGS (8)
  1. JANUMET [Concomitant]
     Active Substance: METFORMIN HYDROCHLORIDE\SITAGLIPTIN PHOSPHATE
  2. RESTASIS [Concomitant]
     Active Substance: CYCLOSPORINE
  3. SPIRNOLACTONE [Concomitant]
  4. URSODIOL. [Concomitant]
     Active Substance: URSODIOL
  5. VYNDAQEL [Suspect]
     Active Substance: TAFAMIDIS MEGLUMINE
     Route: 048
  6. ATORVASTAIN [Concomitant]
     Active Substance: ATORVASTATIN
  7. BUMETANIDE. [Concomitant]
     Active Substance: BUMETANIDE
  8. DOXYCYCLINE. [Concomitant]
     Active Substance: DOXYCYCLINE

REACTIONS (1)
  - Heart transplant [None]

NARRATIVE: CASE EVENT DATE: 20200520
